FAERS Safety Report 20503536 (Version 1)
Quarter: 2022Q1

REPORT INFORMATION
  Report Type: Spontaneous
  Country: US (occurrence: None)
  Receive Date: 20220220
  Receipt Date: 20220220
  Transmission Date: 20220424
  Serious: Yes (Other)
  Sender: FDA-Public Use
  Company Number: None

PATIENT
  Age: 40 Year
  Sex: Female
  Weight: 81 kg

DRUGS (14)
  1. CEFUROXIME AXETIL [Suspect]
     Active Substance: CEFUROXIME AXETIL
     Indication: Urinary tract infection
     Dosage: OTHER QUANTITY : 20 TABLET(S);?FREQUENCY : TWICE A DAY;?
     Route: 048
     Dates: start: 20220212, end: 20220218
  2. PROGRAF [Concomitant]
     Active Substance: TACROLIMUS
  3. CELLCEPT [Concomitant]
     Active Substance: MYCOPHENOLATE MOFETIL
  4. PREDNISONE [Concomitant]
     Active Substance: PREDNISONE
  5. LASIX [Concomitant]
     Active Substance: FUROSEMIDE
  6. DOCUSATE [Concomitant]
     Active Substance: DOCUSATE
  7. ATENOLOL [Concomitant]
     Active Substance: ATENOLOL
  8. NORVASC [Concomitant]
     Active Substance: AMLODIPINE BESYLATE
  9. DITROPAN [Concomitant]
     Active Substance: OXYBUTYNIN CHLORIDE
  10. FOSAMAX [Concomitant]
     Active Substance: ALENDRONATE SODIUM
  11. IRON [Concomitant]
     Active Substance: IRON
  12. Magnessium [Concomitant]
  13. TYLENOL [Concomitant]
     Active Substance: ACETAMINOPHEN
  14. Azo Urinary Track Health [Concomitant]

REACTIONS (6)
  - Disturbance in attention [None]
  - Sleep disorder [None]
  - Paranoia [None]
  - Thinking abnormal [None]
  - Anxiety [None]
  - Emotional disorder [None]

NARRATIVE: CASE EVENT DATE: 20220218
